FAERS Safety Report 19552807 (Version 16)
Quarter: 2022Q3

REPORT INFORMATION
  Report Type: Spontaneous
  Country: CA (occurrence: CA)
  Receive Date: 20210715
  Receipt Date: 20220909
  Transmission Date: 20221027
  Serious: Yes (Other)
  Sender: FDA-Public Use
  Company Number: CA-CELLTRION INC.-2021CA008145

PATIENT

DRUGS (26)
  1. INFLECTRA [Suspect]
     Active Substance: INFLIXIMAB-DYYB
     Indication: Crohn^s disease
     Dosage: 500MG WEEK 0,2,6 THEN EVERY 8 WEEKS
     Route: 042
     Dates: start: 20210408, end: 20210521
  2. INFLECTRA [Suspect]
     Active Substance: INFLIXIMAB-DYYB
     Dosage: 500MG WEEK 0,2,6 THEN EVERY 8 WEEKS
     Route: 042
     Dates: start: 20210421
  3. INFLECTRA [Suspect]
     Active Substance: INFLIXIMAB-DYYB
     Dosage: 500 MG WEEK 0,2,6 THEN EVERY 8 WEEKS
     Route: 042
     Dates: start: 20210521
  4. INFLECTRA [Suspect]
     Active Substance: INFLIXIMAB-DYYB
     Dosage: 500 MG WEEK 0,2,6 THEN EVERY 8 WEEKS
     Route: 042
     Dates: start: 20210521
  5. INFLECTRA [Suspect]
     Active Substance: INFLIXIMAB-DYYB
     Dosage: 1000 MG EVERY 4 WEEKS
     Route: 042
     Dates: start: 20210708, end: 20210907
  6. INFLECTRA [Suspect]
     Active Substance: INFLIXIMAB-DYYB
     Dosage: 1000 MG EVERY 4 WEEKS
     Route: 042
     Dates: start: 20210810
  7. INFLECTRA [Suspect]
     Active Substance: INFLIXIMAB-DYYB
     Dosage: 1000 MG EVERY 4 WEEKS
     Route: 042
     Dates: start: 20210907
  8. INFLECTRA [Suspect]
     Active Substance: INFLIXIMAB-DYYB
     Dosage: 1000 MG EVERY 4 WEEKS
     Route: 042
     Dates: start: 20210907
  9. INFLECTRA [Suspect]
     Active Substance: INFLIXIMAB-DYYB
     Dosage: 1100 MG, EVERY 4 WEEKS
     Route: 042
     Dates: start: 20211006, end: 20220127
  10. INFLECTRA [Suspect]
     Active Substance: INFLIXIMAB-DYYB
     Dosage: 1100 MG, EVERY 4 WEEKS
     Route: 042
     Dates: start: 20211101
  11. INFLECTRA [Suspect]
     Active Substance: INFLIXIMAB-DYYB
     Dosage: 1100 MG, EVERY 4 WEEKS
     Route: 042
     Dates: start: 20211230
  12. INFLECTRA [Suspect]
     Active Substance: INFLIXIMAB-DYYB
     Dosage: 1100 MG, EVERY 4 WEEKS
     Route: 042
     Dates: start: 20220127
  13. INFLECTRA [Suspect]
     Active Substance: INFLIXIMAB-DYYB
     Dosage: 1100 MG, EVERY 4 WEEKS
     Route: 042
     Dates: start: 20220309
  14. INFLECTRA [Suspect]
     Active Substance: INFLIXIMAB-DYYB
     Dosage: 1100 MG, EVERY 6 WEEKS
     Route: 042
     Dates: start: 20220309
  15. INFLECTRA [Suspect]
     Active Substance: INFLIXIMAB-DYYB
     Dosage: 1100 MG, EVERY 6 WEEKS
     Route: 042
     Dates: start: 20220421
  16. INFLECTRA [Suspect]
     Active Substance: INFLIXIMAB-DYYB
     Dosage: 1100 MG, EVERY 6 WEEKS
     Route: 042
     Dates: start: 20220531
  17. INFLECTRA [Suspect]
     Active Substance: INFLIXIMAB-DYYB
     Dosage: 1100 MG, EVERY 6 WEEKS
     Route: 042
     Dates: start: 20220714
  18. INFLECTRA [Suspect]
     Active Substance: INFLIXIMAB-DYYB
     Dosage: 1100 MG, EVERY 6 WEEKS
     Route: 042
     Dates: start: 20220825
  19. BRINTELLIX [Concomitant]
     Active Substance: VORTIOXETINE HYDROBROMIDE
     Indication: Depression
     Dosage: 1 DF
     Route: 065
  20. CORTISONE [Concomitant]
     Active Substance: CORTISONE
     Dosage: UNK, ^4^ CORTISONE 4 AND WILL BE REDUCED TO 3 NEXT TUESDAY
     Route: 048
  21. CORTISONE [Concomitant]
     Active Substance: CORTISONE
     Dosage: UNK, ^3^ CORTISONE 4 AND WILL BE REDUCED TO 3 NEXT TUESDAY
     Route: 048
  22. PREDNISONE [Concomitant]
     Active Substance: PREDNISONE
     Indication: Colitis
     Dosage: UNK (TAPERING DOSE)
  23. PREDNISONE [Concomitant]
     Active Substance: PREDNISONE
     Dosage: 35 MG
  24. PREDNISONE [Concomitant]
     Active Substance: PREDNISONE
     Dosage: 9 MG, 1X/DAY
     Route: 065
     Dates: start: 20210331
  25. PURINETHOL [Concomitant]
     Active Substance: MERCAPTOPURINE
     Dosage: UNK, 2 PILLS
  26. TRINTELLIX [Concomitant]
     Active Substance: VORTIOXETINE HYDROBROMIDE
     Dosage: 1 DF
     Route: 065

REACTIONS (12)
  - Haemolysis [Unknown]
  - Condition aggravated [Recovered/Resolved]
  - Off label use [Unknown]
  - Off label use [Unknown]
  - Inappropriate schedule of product administration [Unknown]
  - Malaise [Unknown]
  - Tremor [Not Recovered/Not Resolved]
  - Weight increased [Unknown]
  - Fatigue [Not Recovered/Not Resolved]
  - Peripheral swelling [Recovered/Resolved]
  - Dizziness [Not Recovered/Not Resolved]
  - Headache [Not Recovered/Not Resolved]

NARRATIVE: CASE EVENT DATE: 20210101
